FAERS Safety Report 10515761 (Version 1)
Quarter: 2014Q4

REPORT INFORMATION
  Report Type: Spontaneous
  Country: GR (occurrence: GR)
  Receive Date: 20141014
  Receipt Date: 20141014
  Transmission Date: 20150528
  Serious: Yes (Hospitalization)
  Sender: FDA-Public Use
  Company Number: GR-ASTRAZENECA-2014SE77175

PATIENT
  Age: 23 Year
  Sex: Female
  Weight: 71 kg

DRUGS (4)
  1. ROPIVACAINE [Suspect]
     Active Substance: ROPIVACAINE
     Indication: ANAESTHESIA
     Route: 008
  2. METHYLDOPA. [Suspect]
     Active Substance: METHYLDOPA
  3. ATENOLOL. [Suspect]
     Active Substance: ATENOLOL
     Indication: HYPERTENSION
     Route: 048
  4. FENTANYL. [Suspect]
     Active Substance: FENTANYL
     Indication: ANAESTHESIA
     Route: 008

REACTIONS (2)
  - Pneumocephalus [Recovered/Resolved]
  - Exposure during pregnancy [Unknown]
